FAERS Safety Report 4390270-0 (Version None)
Quarter: 2004Q3

REPORT INFORMATION
  Report Type: 
  Country: None (occurrence: None)
  Receive Date: 20040706
  Receipt Date: 20040629
  Transmission Date: 20050211
  Serious: Yes (Other)
  Sender: FDA-Public Use
  Company Number: US-ROCHE-372364

PATIENT
  Age: 20 Year
  Sex: Female
  Weight: 57.7 kg

DRUGS (5)
  1. XENICAL [Suspect]
     Indication: OBESITY
     Route: 048
     Dates: start: 20030730, end: 20030817
  2. KEPPRA [Interacting]
     Route: 048
  3. KEPPRA [Interacting]
     Route: 048
  4. LAMICTAL [Interacting]
     Route: 048
     Dates: start: 19980615
  5. LAMICTAL [Interacting]
     Route: 048

REACTIONS (2)
  - DRUG INTERACTION [None]
  - GRAND MAL CONVULSION [None]
